FAERS Safety Report 12655092 (Version 1)
Quarter: 2016Q3

REPORT INFORMATION
  Report Type: Spontaneous
  Country: US (occurrence: US)
  Receive Date: 20160816
  Receipt Date: 20160816
  Transmission Date: 20161109
  Serious: No
  Sender: FDA-Public Use
  Company Number: US-APOTEX-2016AP009087

PATIENT
  Sex: Female
  Weight: 81.6 kg

DRUGS (4)
  1. LITHIUM CARBONATE. [Suspect]
     Active Substance: LITHIUM CARBONATE
     Indication: PRODUCT USED FOR UNKNOWN INDICATION
     Dosage: UNK
     Route: 065
  2. ARIPIPRAZOLE TABLETS [Suspect]
     Active Substance: ARIPIPRAZOLE
     Dosage: 10 MG, QD
     Route: 065
  3. ARIPIPRAZOLE TABLETS [Suspect]
     Active Substance: ARIPIPRAZOLE
     Indication: PSYCHOTIC DISORDER
     Dosage: 10 MG, TID
     Route: 065
  4. ABILIFY MAINTENA [Suspect]
     Active Substance: ARIPIPRAZOLE
     Indication: PSYCHOTIC DISORDER
     Dosage: UNK
     Route: 030

REACTIONS (11)
  - Trismus [Unknown]
  - Hypoaesthesia [Unknown]
  - Tension [Unknown]
  - Dry mouth [Unknown]
  - Swollen tongue [Unknown]
  - Muscle spasms [Unknown]
  - Feeling abnormal [Unknown]
  - Tardive dyskinesia [Unknown]
  - Pharyngeal oedema [Unknown]
  - Musculoskeletal stiffness [Unknown]
  - Off label use [Unknown]
